FAERS Safety Report 23417549 (Version 1)
Quarter: 2024Q1

REPORT INFORMATION
  Report Type: Report from Study
  Country: CA (occurrence: None)
  Receive Date: 20240118
  Receipt Date: 20240118
  Transmission Date: 20240410
  Serious: Yes (Other)
  Sender: FDA-Public Use
  Company Number: 2024A013923

PATIENT
  Sex: Female

DRUGS (7)
  1. FASENRA [Suspect]
     Active Substance: BENRALIZUMAB
     Indication: Asthma
     Dosage: 30.0MG UNKNOWN
     Route: 058
     Dates: start: 20181113
  2. SYMBICORT [Concomitant]
     Active Substance: BUDESONIDE\FORMOTEROL FUMARATE DIHYDRATE
     Dosage: 2 INH TWICE A DAY
  3. RITUXAN [Concomitant]
     Active Substance: RITUXIMAB
     Dosage: 1000MG IV 2X 2 WEEKS APART Q6 MONTHS
  4. SPIRIVA [Concomitant]
     Active Substance: TIOTROPIUM BROMIDE MONOHYDRATE
     Dosage: 2.5 MCG 2 PUFFS OD
  5. CELEBREX [Concomitant]
     Active Substance: CELECOXIB
  6. ELAVIL [Concomitant]
     Active Substance: AMITRIPTYLINE HYDROCHLORIDE
  7. ESTRADIOL [Concomitant]
     Active Substance: ESTRADIOL

REACTIONS (2)
  - Acquired gene mutation [Unknown]
  - Pneumonia [Unknown]
